FAERS Safety Report 7321031-8 (Version None)
Quarter: 2011Q1

REPORT INFORMATION
  Report Type: 
  Country: None (occurrence: None)
  Receive Date: 20110228
  Receipt Date: 20110217
  Transmission Date: 20110831
  Serious: Yes (Death, Hospitalization)
  Sender: FDA-Public Use
  Company Number: CN-PERRIGO-11CN001375

PATIENT
  Age: 61 Year
  Sex: Male

DRUGS (2)
  1. ACETAMINOPHEN [Suspect]
     Indication: PRODUCT USED FOR UNKNOWN INDICATION
     Dosage: UNKNOWN, SINGLE
     Route: 048
  2. SOLVENTS AND DILUT. AGENTS,INCL IRRIGAT SOLUT [Suspect]
     Indication: PRODUCT USED FOR UNKNOWN INDICATION
     Dosage: BOTTLE, SINGLE
     Route: 048

REACTIONS (2)
  - MULTI-ORGAN FAILURE [None]
  - INTENTIONAL DRUG MISUSE [None]
